FAERS Safety Report 9213868 (Version 1)
Quarter: 2013Q2

REPORT INFORMATION
  Report Type: Spontaneous
  Country: FR (occurrence: FR)
  Receive Date: 20130405
  Receipt Date: 20130405
  Transmission Date: 20140414
  Serious: Yes (Other)
  Sender: FDA-Public Use
  Company Number: FR-AMGEN-FRASP2013023825

PATIENT
  Age: 62 Year
  Sex: Female

DRUGS (11)
  1. ENBREL [Suspect]
     Indication: PRODUCT USED FOR UNKNOWN INDICATION
     Dosage: 1 DF, SINGLE
     Route: 058
     Dates: start: 20120424, end: 20120424
  2. ENBREL [Suspect]
     Dosage: 1 DF, SINGLE
     Route: 058
     Dates: start: 20120502, end: 20120502
  3. ENBREL [Suspect]
     Dosage: 1 DF, SINGLE
     Route: 058
     Dates: start: 20120509, end: 20120509
  4. IXPRIM [Concomitant]
     Dosage: UNK
  5. EFFERALGAN                         /00020001/ [Concomitant]
     Dosage: UNK
  6. SALAZOPYRINE [Concomitant]
     Dosage: UNK
  7. VITAMIN D /00107901/ [Concomitant]
     Dosage: UNK
  8. COKENZEN [Concomitant]
     Dosage: UNK
  9. UTROGESTAN [Concomitant]
     Dosage: UNK
  10. ESTREVA [Concomitant]
     Dosage: UNK
  11. EFFEXOR [Concomitant]
     Dosage: UNK

REACTIONS (1)
  - Hypersensitivity [Recovered/Resolved]
